FAERS Safety Report 19258005 (Version 1)
Quarter: 2021Q2

REPORT INFORMATION
  Report Type: Spontaneous
  Country: US (occurrence: US)
  Receive Date: 20210514
  Receipt Date: 20210514
  Transmission Date: 20210717
  Serious: Yes (Life-Threatening, Hospitalization)
  Sender: FDA-Public Use
  Company Number: US-MYLANLABS-2021M1028079

PATIENT
  Age: 50 Year
  Sex: Male

DRUGS (4)
  1. EPINEPHRINE. [Suspect]
     Active Substance: EPINEPHRINE
     Indication: SHOCK
     Dosage: 10 MICROGRAM, QMINUTE
  2. NOREPINEPHRINE. [Suspect]
     Active Substance: NOREPINEPHRINE
     Indication: SHOCK
     Dosage: 30 MICROGRAM, QMINUTE
  3. VASOPRESSIN. [Suspect]
     Active Substance: VASOPRESSIN
     Indication: SHOCK
     Dosage: 0.04 INTERNATIONAL UNIT, QMINUTE
  4. ALBUMIN [Concomitant]
     Active Substance: ALBUMIN HUMAN
     Indication: SHOCK
     Dosage: BOLUSES
     Route: 065

REACTIONS (1)
  - Drug ineffective [Unknown]
